FAERS Safety Report 7398147-3 (Version None)
Quarter: 2011Q2

REPORT INFORMATION
  Report Type: 
  Country: None (occurrence: None)
  Receive Date: 20110406
  Receipt Date: 20110324
  Transmission Date: 20111010
  Serious: Yes (Other)
  Sender: FDA-Public Use
  Company Number: PHHY2011US25043

PATIENT
  Sex: Female

DRUGS (4)
  1. CALCIUM W/VITAMIN D NOS [Concomitant]
  2. ASPIRIN [Concomitant]
  3. VITAMIN B COMPLEX CAP [Concomitant]
  4. RECLAST [Suspect]
     Dosage: UNK
     Dates: start: 20100401

REACTIONS (2)
  - COMPRESSION FRACTURE [None]
  - FRACTURE [None]
